FAERS Safety Report 19355040 (Version 2)
Quarter: 2021Q2

REPORT INFORMATION
  Report Type: Spontaneous
  Country: AU (occurrence: AU)
  Receive Date: 20210602
  Receipt Date: 20210603
  Transmission Date: 20210717
  Serious: Yes (Life-Threatening, Hospitalization)
  Sender: FDA-Public Use
  Company Number: AU-TEVA-2021-AU-1917411

PATIENT
  Age: 51 Year
  Sex: Female

DRUGS (5)
  1. INSULIN [Concomitant]
     Active Substance: INSULIN NOS
     Indication: TYPE 2 DIABETES MELLITUS
     Route: 065
  2. TAPENTADOL [Suspect]
     Active Substance: TAPENTADOL
     Indication: NEURALGIA
     Dosage: 500 MILLIGRAM DAILY;
     Route: 065
  3. PAROXETINE. [Concomitant]
     Active Substance: PAROXETINE
     Indication: DEPRESSION
     Dosage: 20 MILLIGRAM DAILY;
     Route: 065
  4. PREGABALIN. [Suspect]
     Active Substance: PREGABALIN
     Indication: NEURALGIA
     Dosage: 600 MILLIGRAM DAILY;
     Route: 065
  5. PREGABALIN. [Suspect]
     Active Substance: PREGABALIN
     Dosage: ADDITIONAL
     Route: 065

REACTIONS (5)
  - Encephalopathy [Recovered/Resolved]
  - Social avoidant behaviour [Recovered/Resolved]
  - Seizure [Recovered/Resolved]
  - Agitation [Recovered/Resolved]
  - Somnolence [Recovered/Resolved]
